FAERS Safety Report 11347457 (Version 2)
Quarter: 2015Q3

REPORT INFORMATION
  Report Type: Spontaneous
  Country: US (occurrence: US)
  Receive Date: 20150803
  Receipt Date: 20150831
  Transmission Date: 20151125
  Serious: Yes (Hospitalization, Other)
  Sender: FDA-Public Use
  Company Number: US-ELI_LILLY_AND_COMPANY-US201107003424

PATIENT
  Sex: Male

DRUGS (8)
  1. HYDROXYZINE [Concomitant]
     Active Substance: HYDROXYZINE\HYDROXYZINE HYDROCHLORIDE
     Dosage: 50 MG, BID
  2. IMIPRAMINE [Concomitant]
     Active Substance: IMIPRAMINE
     Dosage: 50 MG, EACH EVENING
  3. GABAPENTIN. [Concomitant]
     Active Substance: GABAPENTIN
     Dosage: UNK, BID
  4. TEMAZEPAM. [Concomitant]
     Active Substance: TEMAZEPAM
     Dosage: 30 MG, EACH EVENING
  5. ZYPREXA [Suspect]
     Active Substance: OLANZAPINE
     Indication: DEPRESSION
     Dosage: 10 MG, BID
     Dates: start: 20101230, end: 201106
  6. CLONAZEPAM. [Concomitant]
     Active Substance: CLONAZEPAM
     Dosage: 2 MG, BID
  7. CYMBALTA [Suspect]
     Active Substance: DULOXETINE HYDROCHLORIDE
     Indication: DEPRESSION
     Dosage: 60 MG, QD
     Dates: start: 201008
  8. BACLOFEN. [Concomitant]
     Active Substance: BACLOFEN
     Dosage: 10 MG, QD

REACTIONS (14)
  - Pain in extremity [Not Recovered/Not Resolved]
  - Weight increased [Recovered/Resolved]
  - Suicidal ideation [Unknown]
  - Hostility [Unknown]
  - Limb injury [Unknown]
  - Intentional product misuse [Unknown]
  - Insomnia [Unknown]
  - Product use issue [Recovered/Resolved]
  - Anger [Unknown]
  - Lack of spontaneous speech [Unknown]
  - Eating disorder [Unknown]
  - Apathy [Unknown]
  - Abnormal behaviour [Unknown]
  - Drug ineffective [Unknown]
